FAERS Safety Report 17869658 (Version 2)
Quarter: 2021Q3

REPORT INFORMATION
  Report Type: Spontaneous
  Country: US (occurrence: US)
  Receive Date: 20200608
  Receipt Date: 20210712
  Transmission Date: 20211014
  Serious: Yes (Other)
  Sender: FDA-Public Use
  Company Number: US-TEVA-2020-US-1245136

PATIENT
  Sex: Male

DRUGS (7)
  1. DIOVAN [Suspect]
     Active Substance: VALSARTAN
     Indication: HYPERTENSION
     Dosage: 160/12.5 MG
     Route: 065
     Dates: start: 20061108, end: 20070308
  2. LOSARTAN?HCTZ TORRENT PHARMA [Suspect]
     Active Substance: HYDROCHLOROTHIAZIDE\LOSARTAN
     Dosage: 100/25MG
     Route: 065
     Dates: start: 20190723, end: 20191021
  3. LOSARTAN LUPIN PHARMA [Suspect]
     Active Substance: LOSARTAN
     Indication: HYPERTENSION
     Route: 065
     Dates: start: 20191219, end: 20200516
  4. VALSARTAN?HCTZ SANDOZ [Suspect]
     Active Substance: HYDROCHLOROTHIAZIDE\VALSARTAN
     Indication: HYPERTENSION
     Dosage: 320/12.5 MG
     Route: 065
     Dates: start: 20130228, end: 20130828
  5. LOSARTAN?HCTZ TORRENT PHARMA [Suspect]
     Active Substance: HYDROCHLOROTHIAZIDE\LOSARTAN
     Indication: HYPERTENSION
     Dosage: 100/25MG
     Route: 065
     Dates: start: 20190128, end: 20190727
  6. VALSARTAN?HCTZ SOLCO [Suspect]
     Active Substance: HYDROCHLOROTHIAZIDE\VALSARTAN
     Indication: HYPERTENSION
     Dosage: 320/12.5 MG
     Route: 065
     Dates: start: 20160829, end: 20180827
  7. LOSARTAN ACETRIS [Suspect]
     Active Substance: LOSARTAN
     Indication: HYPERTENSION
     Route: 065
     Dates: start: 20191021, end: 20200119

REACTIONS (1)
  - Transitional cell carcinoma [Recovered/Resolved]
